FAERS Safety Report 9636373 (Version 4)
Quarter: 2013Q4

REPORT INFORMATION
  Report Type: Report from Study
  Country: PR (occurrence: PR)
  Receive Date: 20131021
  Receipt Date: 20131202
  Transmission Date: 20140711
  Serious: Yes (Other)
  Sender: FDA-Public Use
  Company Number: PR-ABBVIE-13P-131-1153581-00

PATIENT
  Sex: Female
  Weight: 84.9 kg

DRUGS (10)
  1. HUMIRA [Suspect]
     Indication: RHEUMATOID ARTHRITIS
     Dosage: 1 INJECTION
     Route: 058
  2. HUMIRA [Suspect]
     Dosage: 1 INJECTION
     Route: 058
  3. LISINOPRIL [Concomitant]
     Indication: HYPERTENSION
     Route: 048
  4. PRILOSEC [Concomitant]
     Indication: HYPERCHLORHYDRIA
     Route: 048
  5. CELEXA [Concomitant]
     Indication: DEPRESSION
     Route: 048
     Dates: start: 2007
  6. CLONAZEPAM [Concomitant]
     Indication: ANXIETY
     Dosage: 1/2 TABLET BID AND 1 TABLET AT BEDTIME
     Route: 048
     Dates: start: 2007
  7. FOLIC ACID [Concomitant]
     Indication: RHEUMATOID ARTHRITIS
     Route: 048
     Dates: start: 2012
  8. METHOTREXATE [Concomitant]
     Indication: RHEUMATOID ARTHRITIS
     Route: 048
     Dates: start: 2012
  9. RELAFEN [Concomitant]
     Indication: MUSCLE SPASMS
     Route: 048
  10. NEURONTIN [Concomitant]
     Indication: RHEUMATOID ARTHRITIS
     Dosage: 1 TABLET AT BEDTIME
     Route: 048

REACTIONS (6)
  - Uterine haemorrhage [Recovered/Resolved]
  - Vaginal haemorrhage [Recovered/Resolved]
  - Ear pain [Not Recovered/Not Resolved]
  - Headache [Not Recovered/Not Resolved]
  - Injection site pain [Not Recovered/Not Resolved]
  - Anxiety [Not Recovered/Not Resolved]
